FAERS Safety Report 16641263 (Version 1)
Quarter: 2019Q3

REPORT INFORMATION
  Report Type: Spontaneous
  Country: DE (occurrence: DE)
  Receive Date: 20190729
  Receipt Date: 20190729
  Transmission Date: 20191004
  Serious: Yes (Hospitalization)
  Sender: FDA-Public Use
  Company Number: DE-SCIEGEN PHARMACEUTICALS INC-2019SCILIT00223

PATIENT
  Age: 85 Year
  Sex: Male

DRUGS (2)
  1. QUETIAPINE. [Suspect]
     Active Substance: QUETIAPINE
  2. MELPERONE [Suspect]
     Active Substance: MELPERONE

REACTIONS (4)
  - Cognitive disorder [Recovered/Resolved]
  - Overdose [Unknown]
  - Somnolence [Unknown]
  - Product use in unapproved indication [None]
